FAERS Safety Report 22066674 (Version 1)
Quarter: 2023Q1

REPORT INFORMATION
  Report Type: Spontaneous
  Country: US (occurrence: US)
  Receive Date: 20230306
  Receipt Date: 20230306
  Transmission Date: 20230418
  Serious: Yes (Other)
  Sender: FDA-Public Use
  Company Number: US-TEVA-2023-US-2862575

PATIENT
  Sex: Female

DRUGS (1)
  1. DEXTROAMPHET SACCHARAT, AMPHET ASPARTATE, DEXTROAMPHET SULFATE AND AMP [Suspect]
     Active Substance: AMPHETAMINE ASPARTATE\AMPHETAMINE SULFATE\DEXTROAMPHETAMINE SACCHARATE\DEXTROAMPHETAMINE SULFATE
     Indication: Product used for unknown indication
     Dosage: 10 MILLIGRAM
     Route: 065

REACTIONS (10)
  - Confusional state [Unknown]
  - Depression [Unknown]
  - Agitation [Unknown]
  - Anger [Unknown]
  - Anxiety [Unknown]
  - Fatigue [Unknown]
  - Migraine [Unknown]
  - Migraine postdrome [Unknown]
  - Impaired driving ability [Unknown]
  - Impaired work ability [Unknown]
